FAERS Safety Report 24595106 (Version 7)
Quarter: 2025Q4

REPORT INFORMATION
  Report Type: Report from Study
  Country: JP (occurrence: JP)
  Receive Date: 20241108
  Receipt Date: 20251112
  Transmission Date: 20260117
  Serious: Yes (Death, Hospitalization, Other)
  Sender: BRISTOL-MYERS SQUIBB COMPANY
  Company Number: JP-BRISTOL-MYERS SQUIBB COMPANY-2024-015812

PATIENT
  Age: 74 Year
  Sex: Male
  Weight: 60.2 kg

DRUGS (6)
  1. YERVOY [Suspect]
     Active Substance: IPILIMUMAB
     Indication: Non-small cell lung cancer
     Route: 041
     Dates: start: 20211223, end: 20211223
  2. YERVOY [Suspect]
     Active Substance: IPILIMUMAB
     Route: 041
     Dates: start: 20220209, end: 20220209
  3. YERVOY [Suspect]
     Active Substance: IPILIMUMAB
     Route: 041
     Dates: start: 20231227, end: 20231227
  4. OPDIVO [Suspect]
     Active Substance: NIVOLUMAB
     Indication: Non-small cell lung cancer
     Dosage: TOTAL NUMBER OF DOSES: 22 DOSES
     Dates: start: 20211223, end: 20211223
  5. OPDIVO [Suspect]
     Active Substance: NIVOLUMAB
     Dosage: TOTAL NUMBER OF DOSES: 22 DOSES
     Dates: start: 20220302, end: 20220302
  6. OPDIVO [Suspect]
     Active Substance: NIVOLUMAB
     Dosage: TOTAL NUMBER OF DOSES: 22 DOSES
     Dates: start: 20231227, end: 20231227

REACTIONS (5)
  - Immune-mediated enterocolitis [Fatal]
  - Hypopituitarism [Not Recovered/Not Resolved]
  - Non-small cell lung cancer [Unknown]
  - Adrenal insufficiency [Unknown]
  - Peritonitis [Unknown]

NARRATIVE: CASE EVENT DATE: 20220408
